FAERS Safety Report 6503153-4 (Version None)
Quarter: 2009Q4

REPORT INFORMATION
  Report Type: 
  Country: None (occurrence: None)
  Receive Date: 20091217
  Receipt Date: 20091211
  Transmission Date: 20100525
  Serious: Yes (Hospitalization)
  Sender: FDA-Public Use
  Company Number: IT-ASTRAZENECA-2009SE23780

PATIENT
  Age: 28750 Day
  Sex: Female

DRUGS (5)
  1. TENORETIC 100 [Suspect]
     Indication: HYPERTENSION
     Dosage: 100+25 MG, DAILY
     Route: 048
     Dates: start: 20090101, end: 20091008
  2. EFFEXOR [Suspect]
     Indication: DEPRESSION
     Route: 048
     Dates: start: 20090101, end: 20091008
  3. DELORAZEPAM [Concomitant]
     Route: 048
  4. APROVEL [Concomitant]
     Route: 048
  5. KOLIBRI [Concomitant]
     Dosage: 37.5 + 325 MG
     Route: 048

REACTIONS (3)
  - HYPOKALAEMIA [None]
  - HYPONATRAEMIA [None]
  - SOPOR [None]
